FAERS Safety Report 13205420 (Version 1)
Quarter: 2017Q1

REPORT INFORMATION
  Report Type: Spontaneous
  Country: US (occurrence: US)
  Receive Date: 20170208
  Receipt Date: 20170208
  Transmission Date: 20170428
  Serious: No
  Sender: FDA-Public Use
  Company Number: US-AMGEN-USASP2016124515

PATIENT
  Age: 47 Year
  Sex: Female

DRUGS (12)
  1. NEULASTA [Suspect]
     Active Substance: PEGFILGRASTIM
     Indication: PRODUCT USED FOR UNKNOWN INDICATION
     Dosage: UNK
     Route: 065
     Dates: start: 201609
  2. TAXOL [Concomitant]
     Active Substance: PACLITAXEL
     Indication: INVASIVE LOBULAR BREAST CARCINOMA
     Dosage: UNK
     Dates: start: 20160831
  3. EMEND [Concomitant]
     Active Substance: APREPITANT
     Indication: PROPHYLAXIS
     Dosage: UNK
     Dates: start: 201608
  4. TAMOFEN [Concomitant]
     Active Substance: TAMOXIFEN CITRATE
     Indication: INVASIVE LOBULAR BREAST CARCINOMA
     Dosage: UNK
     Dates: start: 20160906
  5. CYCLOPHOSPHAMIDE. [Concomitant]
     Active Substance: CYCLOPHOSPHAMIDE
     Indication: INVASIVE LOBULAR BREAST CARCINOMA
     Dosage: UNK
     Dates: start: 20160831
  6. PALONOSETRON HYDROCHLORIDE. [Concomitant]
     Active Substance: PALONOSETRON HYDROCHLORIDE
     Indication: PROPHYLAXIS
     Dosage: UNK
     Dates: start: 201608
  7. TAMONE [Concomitant]
     Indication: INVASIVE LOBULAR BREAST CARCINOMA
     Dosage: UNK
     Dates: start: 20160906
  8. APO-TAMOX [Concomitant]
     Active Substance: TAMOXIFEN
     Indication: INVASIVE LOBULAR BREAST CARCINOMA
     Dosage: UNK
     Dates: start: 20160906
  9. DEXAMETHASONE. [Concomitant]
     Active Substance: DEXAMETHASONE
     Indication: PROPHYLAXIS
     Dosage: UNK
     Dates: start: 201608
  10. SODIUM CHLORIDE. [Concomitant]
     Active Substance: SODIUM CHLORIDE
     Dosage: UNK
     Dates: start: 201608
  11. NOLVADEX [Concomitant]
     Active Substance: TAMOXIFEN CITRATE
     Indication: INVASIVE LOBULAR BREAST CARCINOMA
     Dosage: UNK
     Dates: start: 20160906
  12. ADRIAMYCIN [Concomitant]
     Active Substance: DOXORUBICIN HYDROCHLORIDE
     Indication: INVASIVE LOBULAR BREAST CARCINOMA
     Dosage: UNK
     Route: 042
     Dates: start: 20160831

REACTIONS (4)
  - Dry mouth [Unknown]
  - Wrong technique in product usage process [Unknown]
  - Oropharyngeal pain [Unknown]
  - Chromaturia [Unknown]

NARRATIVE: CASE EVENT DATE: 20160831
